FAERS Safety Report 11774989 (Version 1)
Quarter: 2015Q4

REPORT INFORMATION
  Report Type: Spontaneous
  Country: BR (occurrence: BR)
  Receive Date: 20151124
  Receipt Date: 20151124
  Transmission Date: 20160304
  Serious: Yes (Other)
  Sender: FDA-Public Use
  Company Number: PHHY2015BR150183

PATIENT
  Age: 71 Year
  Sex: Female

DRUGS (1)
  1. PREDNISONE. [Suspect]
     Active Substance: PREDNISONE
     Indication: ENDOCRINOPATHY DIENCEPHALIC
     Dosage: 25 MG, QD 9FOR 6 YEARS)
     Route: 065

REACTIONS (2)
  - Hypercorticoidism [Unknown]
  - Dermatophytosis [Recovered/Resolved]
